FAERS Safety Report 6150456-1 (Version None)
Quarter: 2009Q2

REPORT INFORMATION
  Report Type: 
  Country: None (occurrence: None)
  Receive Date: 20090409
  Receipt Date: 20090407
  Transmission Date: 20091009
  Serious: Yes (Life-Threatening, Hospitalization, Other)
  Sender: FDA-Public Use
  Company Number: PHHY2009FR13133

PATIENT
  Sex: Female

DRUGS (9)
  1. EXELON [Suspect]
     Indication: DEMENTIA ALZHEIMER'S TYPE
     Dosage: 4.6 MG
     Route: 062
  2. EXELON [Interacting]
     Dosage: 9.5 MG
     Route: 062
  3. TENORMIN [Interacting]
  4. ROCEPHIN [Concomitant]
     Indication: ERYSIPELAS
  5. CALCIPARINE ^DIFREX^ [Concomitant]
     Indication: PHLEBITIS
  6. LEVOTHYROXINE SODIUM [Concomitant]
  7. SPECIAFOLDINE [Concomitant]
  8. DEPAMIDE [Concomitant]
  9. TROSPIUM CHLORIDE [Concomitant]

REACTIONS (7)
  - BRADYCARDIA [None]
  - DRUG INTERACTION [None]
  - ELECTROCARDIOGRAM QRS COMPLEX SHORTENED [None]
  - ERYSIPELAS [None]
  - PHLEBITIS [None]
  - SINUS ARRHYTHMIA [None]
  - VENTRICULAR ASYSTOLE [None]
